FAERS Safety Report 6842482-1 (Version None)
Quarter: 2010Q3

REPORT INFORMATION
  Report Type: 
  Country: None (occurrence: None)
  Receive Date: 20100714
  Receipt Date: 20071212
  Transmission Date: 20110219
  Serious: No
  Sender: FDA-Public Use
  Company Number: US-PFIZER INC-2007063257

PATIENT
  Sex: Female
  Weight: 74.8 kg

DRUGS (9)
  1. CHANTIX [Suspect]
     Indication: SMOKING CESSATION THERAPY
     Route: 048
     Dates: start: 20070617, end: 20070726
  2. LIPITOR [Concomitant]
  3. ACTOS [Concomitant]
  4. SERTRALINE HCL [Concomitant]
     Dosage: 100MG
  5. LISINOPRIL [Concomitant]
     Dosage: 2.5 MG
  6. GLYBURIDE [Concomitant]
  7. ACETYLSALICYLIC ACID [Concomitant]
     Dosage: 81 MG
  8. AMITRIPTYLINE HYDROCHLORIDE [Concomitant]
     Dosage: 75 MG
  9. PRILOSEC [Concomitant]
     Dosage: 20 MG

REACTIONS (6)
  - ABDOMINAL PAIN UPPER [None]
  - ABNORMAL BEHAVIOUR [None]
  - CONSTIPATION [None]
  - DRUG DOSE OMISSION [None]
  - EATING DISORDER [None]
  - NAUSEA [None]
